FAERS Safety Report 7992884-5 (Version None)
Quarter: 2011Q4

REPORT INFORMATION
  Report Type: 
  Country: None (occurrence: None)
  Receive Date: 20111219
  Receipt Date: 20110407
  Transmission Date: 20120403
  Serious: No
  Sender: FDA-Public Use
  Company Number: US-ASTRAZENECA-2011SE19651

PATIENT
  Age: 70 Year
  Sex: Male

DRUGS (6)
  1. CRESTOR [Suspect]
     Indication: HYPERCHOLESTEROLAEMIA
     Route: 048
     Dates: start: 20060101, end: 20080101
  2. FORTAMET [Concomitant]
     Indication: DIABETES MELLITUS
  3. CRESTOR [Suspect]
     Route: 048
     Dates: start: 20080101
  4. TARKA [Concomitant]
     Indication: HYPERTENSION
  5. TARKA [Concomitant]
     Indication: RENAL DISORDER
  6. ASPIRIN [Concomitant]

REACTIONS (4)
  - VITAMIN B12 DEFICIENCY [None]
  - VITAMIN D DEFICIENCY [None]
  - MYALGIA [None]
  - MOBILITY DECREASED [None]
